FAERS Safety Report 23785543 (Version 2)
Quarter: 2024Q2

REPORT INFORMATION
  Report Type: Spontaneous
  Country: US (occurrence: US)
  Receive Date: 20240425
  Receipt Date: 20240430
  Transmission Date: 20240716
  Serious: Yes (Hospitalization, Other)
  Sender: FDA-Public Use
  Company Number: US-BAUSCH-BL-2024-006592

PATIENT
  Age: 20 Year
  Sex: Female

DRUGS (9)
  1. BUPROPION [Suspect]
     Active Substance: BUPROPION
     Indication: Product used for unknown indication
     Dosage: GESTATION TIME AT FIRST EXPOSURE: 1 TRIMESTER (EXTENDED-RELEASE FORMULATION)
     Route: 048
  2. LORAZEPAM [Suspect]
     Active Substance: LORAZEPAM
     Indication: Seizure
     Dosage: GESTATION TIME AT FIRST EXPOSURE (LORAZEPAM): 1 TRIMESTER
     Route: 065
  3. LORAZEPAM [Suspect]
     Active Substance: LORAZEPAM
     Route: 065
  4. POTASSIUM [Suspect]
     Active Substance: POTASSIUM
     Indication: Supplementation therapy
     Dosage: GESTATION TIME AT FIRST EXPOSURE (POTASSIUM): 1 TRIMESTER
     Route: 065
  5. MAGNESIUM [Suspect]
     Active Substance: MAGNESIUM
     Indication: Supplementation therapy
     Dosage: GESTATION TIME AT FIRST EXPOSURE (MAGNESIUM): 1 TRIMESTER
     Route: 065
  6. CALCIUM [Suspect]
     Active Substance: CALCIUM
     Indication: Supplementation therapy
     Dosage: PREGNANCY EXPOSURE (CALCIUM): TO MOTHER IN FIRST TRIMESTER
     Route: 065
  7. ACTIVATED CHARCOAL [Suspect]
     Active Substance: ACTIVATED CHARCOAL
     Indication: Toxicity to various agents
     Dosage: GESTATION TIME AT FIRST EXPOSURE (ACTIVATED CHARCOAL): 1 TRIMESTER
     Route: 065
  8. ONDANSETRON [Suspect]
     Active Substance: ONDANSETRON
     Indication: Toxicity to various agents
     Dosage: PREGNANCY EXPOSURE (ONDANSETRON): TO MOTHER IN FIRST TRIMESTER
     Route: 065
  9. ONDANSETRON [Suspect]
     Active Substance: ONDANSETRON
     Indication: Nausea

REACTIONS (9)
  - Toxicity to various agents [Recovered/Resolved]
  - Suicide attempt [Recovered/Resolved]
  - Electrocardiogram QRS complex prolonged [Recovered/Resolved]
  - Seizure [Recovered/Resolved]
  - Bundle branch block left [Recovered/Resolved]
  - Bundle branch block right [Recovered/Resolved]
  - Electrocardiogram QT prolonged [Recovered/Resolved]
  - Intentional overdose [Unknown]
  - Maternal exposure during pregnancy [Unknown]
